FAERS Safety Report 5706544-4 (Version None)
Quarter: 2008Q2

REPORT INFORMATION
  Report Type: 
  Country: None (occurrence: None)
  Receive Date: 20080414
  Receipt Date: 20080327
  Transmission Date: 20081010
  Serious: Yes (Death, Other)
  Sender: FDA-Public Use
  Company Number: 2008JP001127

PATIENT
  Age: 8 Month
  Sex: Female
  Weight: 8.1 kg

DRUGS (13)
  1. FUNGUARD(MICAFUNGIN INJECTION) [Suspect]
     Indication: RESPIRATORY MONILIASIS
     Dosage: 3 MG/KG, UID/QD, IV DRIP
     Route: 041
     Dates: start: 20070623, end: 20070703
  2. VANCOMYCIN [Suspect]
     Dosage: 300 MG, /D
     Dates: start: 20070622
  3. PN-TWIN NO. 3(AMINO ACIDS NOS, ELECTROLYTES NOS, CARBOHYDRATES NOS) IN [Suspect]
     Dosage: 1200 ML, /D
  4. NEUTROGIN(LENOGRASTIM) INJECTION [Suspect]
     Dosage: 50 UG, /D
     Dates: end: 20070629
  5. PRODIF INJECTION [Concomitant]
  6. VFEND [Concomitant]
  7. MINOCYCLINE HCL [Concomitant]
  8. MEROPEN (MEROPENEM) [Concomitant]
  9. AMIKACIN SULFATE [Concomitant]
  10. HABEKACIN (ARBEKACIN) [Concomitant]
  11. IMMUNE GLOBULIN INTRAVENOUS (HUMAN) [Concomitant]
  12. METHYLPREDNISOLONE SODIUM SUCCINATE [Concomitant]
  13. HYDROCORTONE [Concomitant]

REACTIONS (12)
  - ACUTE RESPIRATORY DISTRESS SYNDROME [None]
  - ALANINE AMINOTRANSFERASE INCREASED [None]
  - ASPARTATE AMINOTRANSFERASE INCREASED [None]
  - BLOOD ALKALINE PHOSPHATASE INCREASED [None]
  - CATHETER RELATED INFECTION [None]
  - CONDITION AGGRAVATED [None]
  - GAMMA-GLUTAMYLTRANSFERASE INCREASED [None]
  - HEPATIC FUNCTION ABNORMAL [None]
  - INFECTION [None]
  - LIVER DISORDER [None]
  - RESPIRATORY FAILURE [None]
  - SEPTIC SHOCK [None]
